FAERS Safety Report 21406487 (Version 2)
Quarter: 2022Q4

REPORT INFORMATION
  Report Type: Spontaneous
  Country: US (occurrence: US)
  Receive Date: 20221004
  Receipt Date: 20221101
  Transmission Date: 20230113
  Serious: No
  Sender: FDA-Public Use
  Company Number: US-PFIZER INC-202201197690

PATIENT
  Age: 38 Year
  Sex: Male
  Weight: 95.238 kg

DRUGS (6)
  1. PAXLOVID [Suspect]
     Active Substance: NIRMATRELVIR\RITONAVIR
     Indication: COVID-19 treatment
     Dosage: [PF-07321332 150 MG]/[RITONAVIR 100 MG]; 2X/DAY;
     Dates: start: 20220919, end: 20220923
  2. OMEPRAZOLE [Concomitant]
     Active Substance: OMEPRAZOLE
     Dosage: 20 MG, 2X/DAY
  3. AMLODIPINE [Concomitant]
     Active Substance: AMLODIPINE BESYLATE
     Dosage: 5 MG, DAILY IN THE EVENING
  4. MUCINEX [Concomitant]
     Active Substance: GUAIFENESIN
     Dosage: PATIENT TOOK A FEW TIMES AS PATIENT STARTED THE ANTIVIRAL (AS DIRECTED)
     Dates: end: 20220921
  5. VITAMIN C [Concomitant]
     Active Substance: ASCORBIC ACID
     Dosage: 500 MG, 1X/DAY (VITAMIN C CHEWABLE)
  6. COUGH SYRUP [AMMONIUM CHLORIDE;CHLORPHENAMINE MALEATE;DIHYDROCODEINE B [Concomitant]
     Dosage: (AS DIRECTED)
     Dates: end: 20220921

REACTIONS (2)
  - Asymptomatic COVID-19 [Recovered/Resolved]
  - Disease recurrence [Recovered/Resolved]

NARRATIVE: CASE EVENT DATE: 20221001
